FAERS Safety Report 4706183-8 (Version None)
Quarter: 2005Q2

REPORT INFORMATION
  Report Type: 
  Country: None (occurrence: None)
  Receive Date: 20050629
  Receipt Date: 20050518
  Transmission Date: 20051028
  Serious: Yes (Hospitalization)
  Sender: FDA-Public Use
  Company Number: 05P-163-0300773-00

PATIENT
  Age: 54 Year
  Sex: Female
  Weight: 142 kg

DRUGS (11)
  1. HUMIRA [Suspect]
     Indication: RHEUMATOID ARTHRITIS
     Dosage: 40 MG, 1 IN 2 WK, SUBCUTANEOUS
     Route: 058
     Dates: start: 20040101, end: 20050201
  2. HUMIRA [Suspect]
     Indication: RHEUMATOID ARTHRITIS
     Dosage: 40 MG, 1 IN 2 WK, SUBCUTANEOUS
     Route: 058
     Dates: start: 20050317
  3. MIRTAZAPINE [Concomitant]
  4. MINOCYCLINE [Concomitant]
  5. LORAZEPAM [Concomitant]
  6. METHADONE [Concomitant]
  7. SALBUTAMOL [Concomitant]
  8. PREDNISONE TAB [Concomitant]
  9. PAROXETINE HYDROCHLORIDE [Concomitant]
  10. DILTIAZEM HCL [Concomitant]
  11. METOLAZONE [Concomitant]

REACTIONS (2)
  - CARDIAC FAILURE CONGESTIVE [None]
  - PNEUMONIA [None]
